FAERS Safety Report 6900662-0 (Version None)
Quarter: 2010Q3

REPORT INFORMATION
  Report Type: 
  Country: None (occurrence: None)
  Receive Date: 20100803
  Receipt Date: 20100727
  Transmission Date: 20110219
  Serious: Yes (Other)
  Sender: FDA-Public Use
  Company Number: US-JNJFOC-20100708823

PATIENT
  Sex: Female
  Weight: 47.63 kg

DRUGS (4)
  1. DURAGESIC-100 [Suspect]
     Indication: NECK PAIN
     Route: 062
  2. DURAGESIC-100 [Suspect]
     Route: 062
  3. DURAGESIC-100 [Suspect]
     Route: 062
  4. DURAGESIC-100 [Suspect]
     Indication: PAIN
     Route: 062

REACTIONS (7)
  - BODY HEIGHT DECREASED [None]
  - CHILLS [None]
  - FEELING COLD [None]
  - MALAISE [None]
  - SKIN CANCER [None]
  - THERAPEUTIC RESPONSE DECREASED [None]
  - TREMOR [None]
